FAERS Safety Report 18935566 (Version 1)
Quarter: 2021Q1

REPORT INFORMATION
  Report Type: Spontaneous
  Country: US (occurrence: US)
  Receive Date: 20210225
  Receipt Date: 20210225
  Transmission Date: 20210420
  Serious: No
  Sender: FDA-Public Use
  Company Number: US-RECORDATI RARE DISEASES-2107305

PATIENT
  Age: 24 Month
  Sex: Male

DRUGS (2)
  1. CYSTADANE [Suspect]
     Active Substance: BETAINE
     Indication: HYPERHOMOCYSTEINAEMIA
     Dates: start: 20180511
  2. HYDROXOCOBALAMINE [Suspect]
     Active Substance: HYDROXOCOBALAMIN

REACTIONS (3)
  - Blood urine present [Unknown]
  - Product use issue [Unknown]
  - Chromaturia [Unknown]

NARRATIVE: CASE EVENT DATE: 20210111
